FAERS Safety Report 8524426-X (Version None)
Quarter: 2012Q3

REPORT INFORMATION
  Report Type: 
  Country: None (occurrence: None)
  Receive Date: 20120720
  Receipt Date: 20120710
  Transmission Date: 20120928
  Serious: Yes (Other)
  Sender: FDA-Public Use
  Company Number: MW-B.I. PHARMACEUTICALS,INC./RIDGEFIELD-2012-EU-03546GD

PATIENT

DRUGS (9)
  1. NEVIRAPINE [Suspect]
     Indication: PROPHYLAXIS
     Dosage: 2 MG/KG
     Route: 048
  2. ZIDOVUDINE [Suspect]
     Indication: PROPHYLAXIS
  3. COMBIVIR [Suspect]
     Indication: HUMAN IMMUNODEFICIENCY VIRUS TRANSMISSION
     Route: 063
  4. LAMIVUDINE [Suspect]
     Indication: HUMAN IMMUNODEFICIENCY VIRUS TRANSMISSION
     Dosage: 4 MG/KG
     Route: 048
  5. LAMIVUDINE [Suspect]
     Indication: PROPHYLAXIS
  6. NEVIRAPINE [Suspect]
     Indication: HUMAN IMMUNODEFICIENCY VIRUS TRANSMISSION
     Route: 064
  7. NEVIRAPINE [Suspect]
     Dosage: INCREASING DOSE SCHEDULE: 10 MG/D IN THE FIRST 2 WEEKS, 20 MG/D WEEKS 3-18, AND 30 MG/D WEEKS 19-28
  8. COMBIVIR [Suspect]
     Indication: PROPHYLAXIS
  9. ZIDOVUDINE [Suspect]
     Indication: HUMAN IMMUNODEFICIENCY VIRUS TRANSMISSION
     Dosage: 2 MG/KG
     Route: 048

REACTIONS (1)
  - TUBERCULOSIS [None]
